FAERS Safety Report 8141280-9 (Version None)
Quarter: 2012Q1

REPORT INFORMATION
  Report Type: 
  Country: None (occurrence: None)
  Receive Date: 20120216
  Receipt Date: 20120210
  Transmission Date: 20120608
  Serious: Yes (Other)
  Sender: FDA-Public Use
  Company Number: US-ALLERGAN-1202041US

PATIENT
  Age: 19 Year
  Sex: Female

DRUGS (1)
  1. ACZONE [Suspect]
     Indication: PRODUCT USED FOR UNKNOWN INDICATION
     Dosage: UNK
     Route: 061

REACTIONS (4)
  - PANIC ATTACK [None]
  - OEDEMA PERIPHERAL [None]
  - CIRCULATORY COLLAPSE [None]
  - BLOOD URINE PRESENT [None]
